FAERS Safety Report 17075927 (Version 1)
Quarter: 2019Q4

REPORT INFORMATION
  Report Type: Report from Study
  Country: JP (occurrence: JP)
  Receive Date: 20191126
  Receipt Date: 20191126
  Transmission Date: 20200122
  Serious: Yes (Hospitalization)
  Sender: FDA-Public Use
  Company Number: JP-GILEAD-2019-0439183

PATIENT
  Age: 74 Year
  Sex: Male

DRUGS (22)
  1. LOSARTAN K [Concomitant]
     Active Substance: LOSARTAN POTASSIUM
     Route: 048
     Dates: start: 20180719
  2. PRANLUKAST [Concomitant]
     Active Substance: PRANLUKAST
     Route: 048
     Dates: start: 20170815, end: 20180629
  3. ONON [Concomitant]
     Active Substance: PRANLUKAST
     Route: 048
     Dates: start: 20170819, end: 20180629
  4. THEO-DUR [Concomitant]
     Active Substance: THEOPHYLLINE ANHYDROUS
     Route: 048
     Dates: start: 20170819, end: 20180629
  5. PULMICORT TURBUHALER [Concomitant]
     Active Substance: BUDESONIDE
     Route: 055
     Dates: start: 20170819
  6. VENETLIN [Concomitant]
     Active Substance: ALBUTEROL SULFATE
     Route: 065
     Dates: start: 20170819, end: 20170909
  7. UNIPHYL LA [Concomitant]
     Active Substance: THEOPHYLLINE ANHYDROUS
     Route: 048
     Dates: start: 20180629
  8. DESALEX [Concomitant]
     Active Substance: DESLORATADINE
     Route: 048
     Dates: start: 20180629
  9. MONTELUKAST [Concomitant]
     Active Substance: MONTELUKAST SODIUM
     Route: 048
     Dates: start: 20180629
  10. METHYLPREDNISOLONE NA SUCCINATE [Concomitant]
     Active Substance: METHYLPREDNISOLONE SODIUM SUCCINATE
     Route: 042
     Dates: start: 20170812, end: 20170824
  11. L-CARBOCISTEINE [Concomitant]
     Active Substance: CARBOCYSTEINE
     Route: 048
     Dates: start: 20170819
  12. VENETLIN [Concomitant]
     Active Substance: ALBUTEROL SULFATE
     Route: 065
     Dates: start: 20180707, end: 20180710
  13. INTAL [Concomitant]
     Active Substance: CROMOLYN SODIUM
     Route: 065
     Dates: start: 20170812, end: 20170906
  14. PRAVASTATIN SODIUM. [Concomitant]
     Active Substance: PRAVASTATIN SODIUM
     Route: 048
     Dates: start: 20170819
  15. SYMBICORT [Concomitant]
     Active Substance: BUDESONIDE\FORMOTEROL FUMARATE DIHYDRATE
     Route: 055
     Dates: start: 20170812
  16. SEREVENT DISKUS [Concomitant]
     Active Substance: SALMETEROL XINAFOATE
     Route: 055
     Dates: start: 20170819, end: 20180812
  17. TALION [Concomitant]
     Route: 048
     Dates: start: 20170819, end: 20180629
  18. BLOPRESS [Concomitant]
     Active Substance: CANDESARTAN CILEXETIL
     Route: 048
     Dates: start: 20170819
  19. ELVITEGRAVIR/COBICISTAT/EMTRICITABINE/TENOFOVIR ALAFENAMIDE [Suspect]
     Active Substance: COBICISTAT\ELVITEGRAVIR\EMTRICITABINE\TENOFOVIR
     Indication: HIV INFECTION
     Dosage: 1 DOSAGE FORM, QD
     Route: 048
     Dates: start: 20170819
  20. INTAL [Concomitant]
     Active Substance: CROMOLYN SODIUM
     Route: 065
     Dates: start: 20180707, end: 20180710
  21. BROMHEXINE HYDROCHLORIDE [Concomitant]
     Active Substance: BROMHEXINE HYDROCHLORIDE
     Route: 065
     Dates: start: 20170819
  22. NORVASC [Concomitant]
     Active Substance: AMLODIPINE BESYLATE
     Route: 048
     Dates: start: 20170819

REACTIONS (1)
  - Asthma [Recovering/Resolving]

NARRATIVE: CASE EVENT DATE: 20180706
